FAERS Safety Report 18615045 (Version 1)
Quarter: 2020Q4

REPORT INFORMATION
  Report Type: Spontaneous
  Country: US (occurrence: US)
  Receive Date: 20201215
  Receipt Date: 20201215
  Transmission Date: 20210114
  Serious: No
  Sender: FDA-Public Use
  Company Number: US-APOTEX-2020AP022734

PATIENT
  Sex: Female

DRUGS (1)
  1. CALCITONIN SALMON (SYNTHETIC ORIGIN) NASAL SPRAY [Suspect]
     Active Substance: CALCITONIN SALMON
     Indication: BONE DISORDER
     Dosage: ONE SPRAY ONCE A DAY IN ONE NOSTRIL (SWITCHED FROM LEFT TO RIGHT AND VICE VERSA EVERYDAY) QD
     Route: 065

REACTIONS (4)
  - Eyelid margin crusting [Recovered/Resolved]
  - Scab [Recovered/Resolved]
  - Eye discharge [Recovered/Resolved]
  - Skin erosion [Recovered/Resolved]
